FAERS Safety Report 8306726-1 (Version None)
Quarter: 2012Q1

REPORT INFORMATION
  Report Type: 
  Country: None (occurrence: None)
  Receive Date: 20120327
  Receipt Date: 20090908
  Transmission Date: 20120608
  Serious: Yes (Hospitalization)
  Sender: FDA-Public Use
  Company Number: PHEH2009US10533

PATIENT
  Sex: Male

DRUGS (6)
  1. GLEEVEC [Suspect]
     Indication: GASTROINTESTINAL CARCINOMA
     Dosage: 600 MG, QD, ORAL ; 400 MG, QD, ORAL
     Route: 048
     Dates: start: 20080901, end: 20090501
  2. GLEEVEC [Suspect]
     Indication: GASTROINTESTINAL CARCINOMA
     Dosage: 600 MG, QD, ORAL ; 400 MG, QD, ORAL
     Route: 048
     Dates: start: 20090501
  3. FUROSEMIDE [Concomitant]
  4. PROPRANOLOL [Concomitant]
  5. CALCIUM CARBONATE [Concomitant]
  6. CELEBREX [Concomitant]

REACTIONS (4)
  - DECREASED APPETITE [None]
  - HAEMORRHAGE [None]
  - FATIGUE [None]
  - ASTHENIA [None]
